FAERS Safety Report 19661717 (Version 1)
Quarter: 2021Q3

REPORT INFORMATION
  Report Type: Spontaneous
  Country: HR (occurrence: HR)
  Receive Date: 20210805
  Receipt Date: 20210805
  Transmission Date: 20211014
  Serious: Yes (Other)
  Sender: FDA-Public Use
  Company Number: HR-TEVA-2021-HR-1939189

PATIENT
  Sex: Female

DRUGS (1)
  1. PRAXITEN [Suspect]
     Active Substance: OXAZEPAM
     Dosage: 300 MG
     Route: 048
     Dates: start: 20210427, end: 20210427

REACTIONS (4)
  - Somnolence [Unknown]
  - Intentional overdose [Unknown]
  - Bradykinesia [Unknown]
  - Suicide attempt [Unknown]

NARRATIVE: CASE EVENT DATE: 20210428
